FAERS Safety Report 6346069-9 (Version None)
Quarter: 2009Q3

REPORT INFORMATION
  Report Type: 
  Country: None (occurrence: None)
  Receive Date: 20090909
  Receipt Date: 20090828
  Transmission Date: 20100115
  Serious: Yes (Hospitalization)
  Sender: FDA-Public Use
  Company Number: CA-ELI_LILLY_AND_COMPANY-CA200908006700

PATIENT
  Sex: Female

DRUGS (3)
  1. ZYPREXA [Suspect]
     Dosage: 20 MG, UNK
     Dates: start: 20090812, end: 20090826
  2. ZYPREXA [Suspect]
     Dosage: 25 MG, UNK
     Dates: start: 20090827
  3. LEVOTHYROXINE [Concomitant]
     Indication: THYROID DISORDER

REACTIONS (4)
  - LIP SWELLING [None]
  - MENTAL DISORDER [None]
  - OVERDOSE [None]
  - SWELLING FACE [None]
